FAERS Safety Report 13086374 (Version 2)
Quarter: 2017Q1

REPORT INFORMATION
  Report Type: Spontaneous
  Country: JP (occurrence: JP)
  Receive Date: 20170104
  Receipt Date: 20170216
  Transmission Date: 20170428
  Serious: Yes (Other)
  Sender: FDA-Public Use
  Company Number: JP-MALLINCKRODT-T201606806

PATIENT
  Age: 66 Year
  Sex: Female
  Weight: 47 kg

DRUGS (14)
  1. LYRICA [Concomitant]
     Active Substance: PREGABALIN
     Dosage: 300 MG, UNK
     Route: 048
     Dates: start: 20150718, end: 20150720
  2. AMITIZA [Concomitant]
     Active Substance: LUBIPROSTONE
     Dosage: 24 ?G, UNK
     Route: 048
  3. SODIUM PICOSULFATE [Concomitant]
     Active Substance: SODIUM PICOSULFATE
     Dosage: 15 GTT, UNK
     Route: 048
  4. MAGMITT [Concomitant]
     Active Substance: MAGNESIUM OXIDE
     Dosage: 1500 MG, UNK
     Route: 048
  5. ZYPREXA [Concomitant]
     Active Substance: OLANZAPINE
     Dosage: 2.5 MG, UNK
     Route: 048
  6. METHADONE [Suspect]
     Active Substance: METHADONE HYDROCHLORIDE
     Dosage: 15 MG (45 MG DAILY DOSE)
     Route: 048
     Dates: start: 20150721
  7. OXINORM [Concomitant]
     Active Substance: OXYCODONE HYDROCHLORIDE
     Indication: ANALGESIC THERAPY
     Dosage: 15 MG, PRN
     Route: 048
     Dates: start: 20150714
  8. LYRICA [Concomitant]
     Active Substance: PREGABALIN
     Dosage: 225 MG, UNK
     Route: 048
     Dates: start: 20150708, end: 20150717
  9. METHADONE [Suspect]
     Active Substance: METHADONE HYDROCHLORIDE
     Indication: CANCER PAIN
     Dosage: 10 MG (30 MG DAILY DOSE)
     Route: 048
     Dates: start: 20150714, end: 20150720
  10. OXINORM [Concomitant]
     Active Substance: OXYCODONE HYDROCHLORIDE
     Dosage: 30 MG
     Route: 048
     Dates: end: 20150716
  11. LYRICA [Concomitant]
     Active Substance: PREGABALIN
     Indication: ANALGESIC THERAPY
     Dosage: 150 MG, UNK
     Route: 048
     Dates: end: 20150707
  12. OXINORM [Concomitant]
     Active Substance: OXYCODONE HYDROCHLORIDE
     Dosage: 60 MG
     Route: 048
     Dates: start: 20150717
  13. LYRICA [Concomitant]
     Active Substance: PREGABALIN
     Dosage: 375 MG, UNK
     Route: 048
     Dates: start: 20150721
  14. SENNOSIDE [Concomitant]
     Active Substance: SENNOSIDES
     Dosage: 24 MG, UNK
     Route: 048

REACTIONS (1)
  - Deep vein thrombosis [Not Recovered/Not Resolved]

NARRATIVE: CASE EVENT DATE: 20150721
